FAERS Safety Report 9678678 (Version 1)
Quarter: 2013Q4

REPORT INFORMATION
  Report Type: Spontaneous
  Country: US (occurrence: US)
  Receive Date: 20131108
  Receipt Date: 20131108
  Transmission Date: 20140711
  Serious: Yes (Hospitalization)
  Sender: FDA-Public Use
  Company Number: US-ELI_LILLY_AND_COMPANY-US201310010734

PATIENT
  Sex: Female

DRUGS (3)
  1. FORTEO [Suspect]
     Indication: OSTEOPOROSIS
     Dosage: UNK, QD
     Route: 065
     Dates: start: 201202, end: 201305
  2. FORTEO [Suspect]
     Indication: BONE DISORDER
     Dosage: UNK, QD
     Route: 065
     Dates: start: 201307
  3. PROLIA [Concomitant]
     Indication: PRODUCT USED FOR UNKNOWN INDICATION
     Dosage: ONE SHOT EVERY 6 MONTHS
     Route: 065

REACTIONS (6)
  - Cervical cord compression [Unknown]
  - Compression fracture [Unknown]
  - Pain [Unknown]
  - Sciatica [Unknown]
  - Back disorder [Unknown]
  - Speech disorder [Unknown]
